FAERS Safety Report 18884325 (Version 4)
Quarter: 2021Q1

REPORT INFORMATION
  Report Type: Spontaneous
  Country: BR (occurrence: BR)
  Receive Date: 20210211
  Receipt Date: 20210326
  Transmission Date: 20210420
  Serious: Yes (Other)
  Sender: FDA-Public Use
  Company Number: BR-AMGEN-BRASP2012003232

PATIENT
  Age: 72 Year
  Sex: Female
  Weight: 72 kg

DRUGS (4)
  1. ENBREL [Suspect]
     Active Substance: ETANERCEPT
     Dosage: 50 MILLIGRAM, QWK
     Route: 058
     Dates: start: 2012, end: 2018
  2. METICORTEN [Concomitant]
     Active Substance: PREDNISONE
     Dosage: 5 MILLIGRAM, QD
  3. CALCIUM [Concomitant]
     Active Substance: CALCIUM
     Dosage: UNK, QD
  4. ENBREL [Suspect]
     Active Substance: ETANERCEPT
     Indication: RHEUMATOID ARTHRITIS
     Dosage: 50 MILLIGRAM, QWK
     Route: 058
     Dates: start: 201002, end: 201112

REACTIONS (8)
  - Skin cancer [Unknown]
  - Product colour issue [Unknown]
  - Dizziness [Recovering/Resolving]
  - Injection site pain [Unknown]
  - Nasopharyngitis [Not Recovered/Not Resolved]
  - Decreased immune responsiveness [Unknown]
  - Injection site warmth [Unknown]
  - Rhinitis [Unknown]

NARRATIVE: CASE EVENT DATE: 2019
